FAERS Safety Report 6582426-3 (Version None)
Quarter: 2010Q1

REPORT INFORMATION
  Report Type: 
  Country: None (occurrence: None)
  Receive Date: 20100216
  Receipt Date: 20100202
  Transmission Date: 20100710
  Serious: Yes (Other)
  Sender: FDA-Public Use
  Company Number: PHHY2010CR05481

PATIENT
  Age: 72 Year
  Sex: Female

DRUGS (5)
  1. DIOVAN [Suspect]
     Dosage: 320 MG /DAY
  2. RASILEZ [Suspect]
     Dosage: 300 MG/DAY
  3. TAFIL [Concomitant]
  4. SPIRON [Concomitant]
  5. NEXIUM [Concomitant]

REACTIONS (1)
  - HYPONATRAEMIA [None]
